FAERS Safety Report 18941261 (Version 1)
Quarter: 2021Q1

REPORT INFORMATION
  Report Type: Spontaneous
  Country: US (occurrence: US)
  Receive Date: 20210225
  Receipt Date: 20210225
  Transmission Date: 20210420
  Serious: No
  Sender: FDA-Public Use
  Company Number: US-GW PHARMA-202102USGW00608

PATIENT

DRUGS (2)
  1. EPIDIOLEX [Suspect]
     Active Substance: CANNABIDIOL
     Indication: IDIOPATHIC GENERALISED EPILEPSY
     Dosage: UNK, PRIOR TO DOSE INCREASE
     Route: 048
     Dates: start: 20201216, end: 2021
  2. EPIDIOLEX [Suspect]
     Active Substance: CANNABIDIOL
     Indication: EPILEPSY
     Dosage: 100 MILLIGRAM, BID (INCREASED DOSE)
     Route: 048
     Dates: start: 2021

REACTIONS (3)
  - Condition aggravated [Unknown]
  - Seizure cluster [Unknown]
  - Product use in unapproved indication [Unknown]
